FAERS Safety Report 7281633-4 (Version None)
Quarter: 2011Q1

REPORT INFORMATION
  Report Type: 
  Country: None (occurrence: None)
  Receive Date: 20110208
  Receipt Date: 20110203
  Transmission Date: 20110831
  Serious: Yes (Death, Hospitalization, Other)
  Sender: FDA-Public Use
  Company Number: PHEH2007US10342

PATIENT
  Sex: Male

DRUGS (26)
  1. CHLORHEXIDINE DENTAL ^ACO^ [Concomitant]
     Dosage: MOUTHRINSES
     Route: 049
  2. MORPHINE [Concomitant]
  3. ROXANOL [Concomitant]
  4. DILAUDID [Concomitant]
  5. BLEOMYCIN [Concomitant]
  6. MS CONTIN [Concomitant]
  7. FLUCONAZOLE [Concomitant]
  8. CIPROFLOXACIN [Concomitant]
  9. NEURONTIN [Concomitant]
  10. PROCRIT                            /00909301/ [Concomitant]
  11. ATIVAN [Concomitant]
  12. VINCRISTINE + ADRIAMYCIN + DEXAMETHASONE [Concomitant]
  13. AUGMENTIN '125' [Concomitant]
     Dosage: 875MG PO BID X3WEEKS
     Route: 048
     Dates: start: 20060927
  14. VELCADE [Concomitant]
  15. KADIAN ^KNOLL^ [Concomitant]
  16. LENALIDOMIDE [Concomitant]
  17. INAPSINE [Concomitant]
  18. REVLIMID [Concomitant]
  19. PROTONIX [Concomitant]
  20. XANAX [Concomitant]
  21. FENTANYL [Concomitant]
  22. HALCION [Concomitant]
  23. MELPHALAN [Concomitant]
  24. COMPAZINE [Concomitant]
  25. ZOMETA [Suspect]
     Indication: MULTIPLE MYELOMA
     Dosage: UNK
     Dates: start: 20030101, end: 20050801
  26. THALIDOMIDE [Concomitant]
     Dosage: UNK

REACTIONS (34)
  - PANCYTOPENIA [None]
  - OSTEONECROSIS OF JAW [None]
  - DEFORMITY [None]
  - DISCOMFORT [None]
  - HYPOGLYCAEMIA [None]
  - PRIMARY SEQUESTRUM [None]
  - LOOSE TOOTH [None]
  - LIFE EXPECTANCY SHORTENED [None]
  - RESPIRATORY DISTRESS [None]
  - INFECTION [None]
  - HYPOPHAGIA [None]
  - ANXIETY [None]
  - MASTICATION DISORDER [None]
  - OROANTRAL FISTULA [None]
  - DYSPNOEA [None]
  - SPINAL COMPRESSION FRACTURE [None]
  - COAGULOPATHY [None]
  - TRISMUS [None]
  - EMOTIONAL DISTRESS [None]
  - ATELECTASIS [None]
  - JAW FRACTURE [None]
  - ACUTE MYOCARDIAL INFARCTION [None]
  - BONE DISORDER [None]
  - ANHEDONIA [None]
  - PNEUMONIA [None]
  - NEUROPATHY PERIPHERAL [None]
  - SEPSIS [None]
  - ORAL DISORDER [None]
  - WOUND DEHISCENCE [None]
  - PAIN IN JAW [None]
  - PAIN [None]
  - HYPOTENSION [None]
  - RENAL FAILURE ACUTE [None]
  - RHINORRHOEA [None]
